FAERS Safety Report 12979442 (Version 1)
Quarter: 2016Q4

REPORT INFORMATION
  Report Type: Spontaneous
  Country: PL (occurrence: PL)
  Receive Date: 20161128
  Receipt Date: 20161128
  Transmission Date: 20170207
  Serious: Yes (Other)
  Sender: FDA-Public Use
  Company Number: PL-PFIZER INC-2016541851

PATIENT
  Age: 3 Year

DRUGS (2)
  1. PAMIDRONATE DISODIUM. [Suspect]
     Active Substance: PAMIDRONATE DISODIUM
     Indication: OSTEOGENESIS IMPERFECTA
  2. VITAMIN D [Concomitant]
     Active Substance: CHOLECALCIFEROL
     Dosage: FROM 2,000 IU OF VITAMIN D/DAY TO 400 IU 2 TIMES A WEEK DEPENDING ON THE 25(OH)D SERUM LEVELS

REACTIONS (3)
  - Urine phosphorus increased [Unknown]
  - Hypocalcaemia [Unknown]
  - Multiple fractures [Unknown]
